FAERS Safety Report 9727840 (Version 7)
Quarter: 2014Q2

REPORT INFORMATION
  Report Type: Spontaneous
  Country: US (occurrence: US)
  Receive Date: 20131204
  Receipt Date: 20140528
  Transmission Date: 20141212
  Serious: No
  Sender: FDA-Public Use
  Company Number: US-009507513-1311USA007706

PATIENT
  Age: 64 Year
  Sex: Male
  Weight: 86.17 kg

DRUGS (13)
  1. PEGINTRON [Suspect]
     Indication: HEPATITIS C
     Dosage: 150 MICROGRAM, QW, REDIPEN 150 MCG / 0.5 ML(4SYR/PK)
     Route: 058
     Dates: start: 20131001
  2. PEGINTRON [Suspect]
     Dosage: 150 MICROGRAM, QW
     Route: 058
  3. REBETOL [Suspect]
     Indication: HEPATITIS C
     Dosage: 2 TABLETS IN MORNING, 3 TABLET IN EVENING
     Route: 048
     Dates: start: 20131002
  4. VICTRELIS [Suspect]
     Indication: HEPATITIS C
     Dosage: 800 MG, TID
     Route: 048
     Dates: start: 20131028
  5. VICTRELIS [Suspect]
     Dosage: 800 MG, TID
     Route: 048
  6. XANAX [Concomitant]
     Dosage: UNK
     Route: 048
  7. NASONEX [Concomitant]
     Dosage: UNK, NASONEX SPR 50MCG/AC
     Route: 045
  8. TRIAMCINOLONE [Concomitant]
  9. ADVAIR [Concomitant]
     Dosage: UNK, ADVAIR DISKU AER 250/50
  10. CYANOCOBALAMIN [Concomitant]
     Dosage: UNK
  11. MAGNESIUM (UNSPECIFIED) [Concomitant]
     Dosage: UNK
     Route: 048
  12. ZINC (UNSPECIFIED) [Concomitant]
     Dosage: UNK
     Route: 048
  13. BENADRYL [Concomitant]
     Route: 048

REACTIONS (14)
  - Skin infection [Unknown]
  - Terminal insomnia [Unknown]
  - Rash erythematous [Unknown]
  - Rash [Unknown]
  - Insomnia [Unknown]
  - Insomnia [Unknown]
  - Insomnia [Unknown]
  - Hypertension [Unknown]
  - Anxiety [Unknown]
  - Anxiety [Unknown]
  - Fatigue [Unknown]
  - Anaemia [Unknown]
  - Rash [Unknown]
  - Rash pruritic [Not Recovered/Not Resolved]
